FAERS Safety Report 7583970-2 (Version None)
Quarter: 2011Q2

REPORT INFORMATION
  Report Type: 
  Country: None (occurrence: None)
  Receive Date: 20110630
  Receipt Date: 20110623
  Transmission Date: 20111010
  Serious: Yes (Hospitalization)
  Sender: FDA-Public Use
  Company Number: US-B.I. PHARMACEUTICALS,INC./RIDGEFIELD-2011-BP-15058BP

PATIENT
  Age: 59 Year
  Sex: Male

DRUGS (16)
  1. AMLODIPINE [Concomitant]
     Indication: HYPERTENSION
     Dosage: 5 MG
  2. VITAMIN D [Concomitant]
     Indication: SUPPLEMENTATION THERAPY
     Dosage: 2000 RT
  3. TIKOSYN [Concomitant]
     Indication: ARRHYTHMIA
     Dosage: 1 MG
  4. RAMIPRIL [Concomitant]
     Indication: HYPERTENSION
     Dosage: 20 MG
  5. LUNESTA [Concomitant]
     Indication: SLEEP DISORDER
  6. MELOXICAM (GENERIC) [Concomitant]
     Indication: ANTIINFLAMMATORY THERAPY
  7. PRADAXA [Suspect]
     Indication: ANTICOAGULANT THERAPY
  8. COREG [Concomitant]
     Indication: HYPERTENSION
     Dosage: 50 MG
  9. FUROSEMIDE [Concomitant]
     Indication: FLUID RETENTION
     Dosage: 20 MG
  10. BUPROPION HCL [Concomitant]
     Indication: DEPRESSION
     Dosage: 150 MG
  11. PRADAXA [Suspect]
     Indication: ATRIAL FIBRILLATION
     Dosage: 300 MG
     Route: 048
     Dates: start: 20110501, end: 20110608
  12. MELOXICAM (GENERIC) [Concomitant]
     Indication: BACK PAIN
     Dosage: 15 MG
  13. ALLOPURINOL [Concomitant]
     Indication: GOUT
     Dosage: 100 MG
  14. GEMFIBROZIL [Concomitant]
     Indication: BLOOD CHOLESTEROL INCREASED
     Dosage: 1200 MG
  15. AMLODIPINE [Concomitant]
     Indication: HEART RATE
  16. HYDROCODONE [Concomitant]
     Indication: BACK PAIN

REACTIONS (7)
  - ABDOMINAL PAIN UPPER [None]
  - APHAGIA [None]
  - DISTURBANCE IN ATTENTION [None]
  - ASTHENIA [None]
  - HAEMATOCHEZIA [None]
  - MENTAL IMPAIRMENT [None]
  - LARGE INTESTINAL HAEMORRHAGE [None]
